FAERS Safety Report 22328896 (Version 1)
Quarter: 2023Q2

REPORT INFORMATION
  Report Type: Spontaneous
  Country: CN (occurrence: CN)
  Receive Date: 20230517
  Receipt Date: 20230517
  Transmission Date: 20230721
  Serious: Yes (Hospitalization, Other)
  Sender: FDA-Public Use
  Company Number: CN-ABBVIE-4768830

PATIENT
  Age: 69 Year
  Sex: Male
  Weight: 65 kg

DRUGS (1)
  1. LOPINAVIR\RITONAVIR [Suspect]
     Active Substance: LOPINAVIR\RITONAVIR
     Indication: Antiviral treatment
     Dosage: 1 GRAM
     Route: 048
     Dates: start: 20230505, end: 20230512

REACTIONS (8)
  - Lipid metabolism disorder [Recovering/Resolving]
  - Hyperlipidaemia [Unknown]
  - Pneumonia [Unknown]
  - Cardiac failure [Unknown]
  - Acquired immunodeficiency syndrome [Unknown]
  - Chest discomfort [Unknown]
  - Hypercholesterolaemia [Unknown]
  - Cor pulmonale [Unknown]

NARRATIVE: CASE EVENT DATE: 20230506
